FAERS Safety Report 13947656 (Version 1)
Quarter: 2017Q3

REPORT INFORMATION
  Report Type: Report from Study
  Country: IT (occurrence: IT)
  Receive Date: 20170908
  Receipt Date: 20170908
  Transmission Date: 20171128
  Serious: Yes (Hospitalization, Other)
  Sender: FDA-Public Use
  Company Number: IT-ALVOGEN-2017-ALVOGEN-093335

PATIENT
  Age: 86 Year
  Sex: Female

DRUGS (12)
  1. TRAZODONE [Suspect]
     Active Substance: TRAZODONE HYDROCHLORIDE
     Indication: ANTIDEPRESSANT THERAPY
  2. RAMIPRIL. [Concomitant]
     Active Substance: RAMIPRIL
  3. ALLOPURINOL. [Concomitant]
     Active Substance: ALLOPURINOL
  4. NIMESULIDE [Concomitant]
     Active Substance: NIMESULIDE
  5. NORFLOXACIN [Concomitant]
     Active Substance: NORFLOXACIN
  6. CEFTAZIDIME. [Concomitant]
     Active Substance: CEFTAZIDIME
  7. RABEPRAZOLE [Concomitant]
     Active Substance: RABEPRAZOLE
  8. FUROSEMIDE. [Concomitant]
     Active Substance: FUROSEMIDE
  9. ACETYLSALICYLIC ACID [Concomitant]
     Active Substance: ASPIRIN
  10. MIRTAZAPINE. [Suspect]
     Active Substance: MIRTAZAPINE
     Indication: ANTIDEPRESSANT THERAPY
  11. PARACETAMOL [Concomitant]
     Active Substance: ACETAMINOPHEN
  12. OLANZAPINE. [Concomitant]
     Active Substance: OLANZAPINE

REACTIONS (1)
  - Liver injury [Unknown]
